FAERS Safety Report 5133090-1 (Version None)
Quarter: 2006Q4

REPORT INFORMATION
  Report Type: 
  Country: None (occurrence: None)
  Receive Date: 20061017
  Receipt Date: 20060929
  Transmission Date: 20070319
  Serious: No
  Sender: FDA-Public Use
  Company Number: 36600

PATIENT
  Age: 90 Year
  Sex: Female

DRUGS (2)
  1. BRINZOLAMIDE 1% SUSPENSION [Suspect]
     Indication: ANGLE CLOSURE GLAUCOMA
     Dosage: OPHT
     Route: 047
     Dates: start: 20021201, end: 20051201
  2. BRINZOLAMIDE 1% SUSPENSION [Suspect]
     Indication: ANGLE CLOSURE GLAUCOMA
     Dosage: OPHT
     Route: 047
     Dates: start: 20060201

REACTIONS (1)
  - BLOOD UREA INCREASED [None]
